FAERS Safety Report 6636641-0 (Version None)
Quarter: 2010Q1

REPORT INFORMATION
  Report Type: 
  Country: None (occurrence: None)
  Receive Date: 20100316
  Receipt Date: 20100309
  Transmission Date: 20100710
  Serious: Yes (Death, Life-Threatening, Hospitalization, Disabling, Other)
  Sender: FDA-Public Use
  Company Number: A0369186A

PATIENT
  Age: 70 Year
  Sex: Male
  Weight: 71 kg

DRUGS (10)
  1. AVANDIA [Suspect]
     Dosage: 4MG TWICE PER DAY
     Route: 048
     Dates: start: 20020314, end: 20020421
  2. INSULIN 70/30 [Concomitant]
     Dosage: 30UNIT PER DAY
     Route: 058
     Dates: start: 20010101, end: 20020426
  3. GLYBURIDE [Concomitant]
     Dosage: 10MG TWICE PER DAY
     Route: 048
     Dates: start: 20010101, end: 20020426
  4. POTASSIUM CHLORIDE [Concomitant]
     Dosage: 20MEQ ALTERNATE DAYS
     Route: 048
     Dates: start: 20010101, end: 20020501
  5. ASPIRIN [Concomitant]
     Indication: CORONARY ARTERY DISEASE
     Dosage: 325MG PER DAY
     Route: 048
     Dates: start: 20010101, end: 20020501
  6. METOPROLOL SUCCINATE [Concomitant]
     Indication: HYPERTENSION
     Dosage: 50MG PER DAY
     Dates: start: 20010101, end: 20020501
  7. FOSINOPRIL SODIUM [Concomitant]
     Dosage: 40MG PER DAY
     Route: 048
     Dates: start: 20010101, end: 20020501
  8. LATANOPROST [Concomitant]
     Indication: GLAUCOMA
     Dosage: 1DROP PER DAY
     Route: 047
     Dates: start: 20020101, end: 20020501
  9. DOCUSATE [Concomitant]
     Dosage: 200MG TWICE PER DAY
  10. BISACODYL [Concomitant]
     Indication: CONSTIPATION
     Dosage: 10MG AS REQUIRED
     Route: 048

REACTIONS (31)
  - ACUTE HEPATIC FAILURE [None]
  - ARTERIOSCLEROSIS [None]
  - ASCITES [None]
  - ASTERIXIS [None]
  - BLOOD ALBUMIN DECREASED [None]
  - CARDIOVASCULAR DISORDER [None]
  - CHEYNE-STOKES RESPIRATION [None]
  - CHOLELITHIASIS [None]
  - COMA [None]
  - DIPLOPIA [None]
  - DISORIENTATION [None]
  - DISSEMINATED INTRAVASCULAR COAGULATION [None]
  - DYSPNOEA [None]
  - ELECTROMECHANICAL DISSOCIATION [None]
  - EXTREMITY NECROSIS [None]
  - HALLUCINATION, VISUAL [None]
  - HEADACHE [None]
  - HEPATIC ENCEPHALOPATHY [None]
  - HYPOREFLEXIA [None]
  - HYPOTENSION [None]
  - HYPOTONIA [None]
  - JAUNDICE [None]
  - MENTAL IMPAIRMENT [None]
  - METABOLIC ACIDOSIS [None]
  - NAUSEA [None]
  - NIGHT SWEATS [None]
  - PNEUMONIA [None]
  - PROTHROMBIN TIME PROLONGED [None]
  - SEPSIS [None]
  - VISION BLURRED [None]
  - VOMITING [None]
